FAERS Safety Report 4349858-5 (Version None)
Quarter: 2004Q2

REPORT INFORMATION
  Report Type: 
  Country: None (occurrence: None)
  Receive Date: 20040428
  Receipt Date: 20040428
  Transmission Date: 20050107
  Serious: Yes (Other)
  Sender: FDA-Public Use
  Company Number: None

PATIENT

DRUGS (4)
  1. FLOLAN [Suspect]
     Indication: PULMONARY HYPERTENSION
     Dosage: 100 ML QD IV
     Route: 042
  2. SIMMS CASSETTES [Concomitant]
  3. SIMMS EXTENSION SETS [Concomitant]
  4. FLOLAN [Concomitant]

REACTIONS (2)
  - BACTERIAL INFECTION [None]
  - PHARMACEUTICAL PRODUCT COMPLAINT [None]
